FAERS Safety Report 23860318 (Version 2)
Quarter: 2024Q2

REPORT INFORMATION
  Report Type: Spontaneous
  Country: US (occurrence: US)
  Receive Date: 20240515
  Receipt Date: 20240523
  Transmission Date: 20240716
  Serious: No
  Sender: FDA-Public Use
  Company Number: US-SANOFI-02047746

PATIENT
  Age: 11 Year
  Sex: Male
  Weight: 37.738 kg

DRUGS (1)
  1. DUPIXENT [Suspect]
     Active Substance: DUPILUMAB
     Indication: Product used for unknown indication
     Dosage: 200 MG, QOW
     Route: 058

REACTIONS (7)
  - Asthma [Recovering/Resolving]
  - Condition aggravated [Recovering/Resolving]
  - Wound [Recovering/Resolving]
  - Skin fissures [Recovering/Resolving]
  - Product dose omission issue [Recovering/Resolving]
  - Accidental exposure to product [Unknown]
  - Exposure via skin contact [Unknown]

NARRATIVE: CASE EVENT DATE: 20240418
